FAERS Safety Report 19659585 (Version 1)
Quarter: 2021Q3

REPORT INFORMATION
  Report Type: Spontaneous
  Country: US (occurrence: US)
  Receive Date: 20210805
  Receipt Date: 20210805
  Transmission Date: 20211014
  Serious: Yes (Other)
  Sender: FDA-Public Use
  Company Number: US-AMGEN-USASP2021118236

PATIENT
  Sex: Female

DRUGS (1)
  1. KANJINTI [Suspect]
     Active Substance: TRASTUZUMAB-ANNS
     Indication: BREAST CANCER
     Dosage: EVERY 21 DAYS
     Route: 065
     Dates: start: 20200901

REACTIONS (3)
  - Back pain [Unknown]
  - Arthralgia [Unknown]
  - Unevaluable event [Unknown]
